FAERS Safety Report 9258707 (Version 1)
Quarter: 2013Q2

REPORT INFORMATION
  Report Type: Spontaneous
  Country: US (occurrence: None)
  Receive Date: 20130425
  Receipt Date: 20130425
  Transmission Date: 20140414
  Serious: Yes (Hospitalization)
  Sender: FDA-Public Use
  Company Number: None

PATIENT
  Age: 86 Year
  Sex: Male

DRUGS (2)
  1. ZYTIGA [Suspect]
     Dosage: 3 TABS DAILY
     Route: 048
     Dates: start: 20130228, end: 201303
  2. PREDNISONE [Suspect]
     Dosage: 1 BID WITH FOOD
     Route: 048

REACTIONS (2)
  - Myocardial infarction [None]
  - Immune system disorder [None]
